FAERS Safety Report 8424688-3 (Version None)
Quarter: 2012Q2

REPORT INFORMATION
  Report Type: 
  Country: None (occurrence: None)
  Receive Date: 20120611
  Receipt Date: 20120530
  Transmission Date: 20120825
  Serious: Yes (Hospitalization)
  Sender: FDA-Public Use
  Company Number: FR-BIOGENIDEC-2012BI012502

PATIENT
  Age: 66 Year
  Sex: Male

DRUGS (3)
  1. AVONEX [Suspect]
     Indication: MULTIPLE SCLEROSIS
     Route: 030
     Dates: start: 20020101, end: 20031001
  2. AVONEX [Suspect]
     Route: 030
     Dates: start: 20110601, end: 20120101
  3. AVONEX [Suspect]
     Route: 030
     Dates: start: 20031001, end: 20100101

REACTIONS (1)
  - HALLUCINATION [None]
